FAERS Safety Report 5273551-8 (Version None)
Quarter: 2007Q1

REPORT INFORMATION
  Report Type: 
  Country: None (occurrence: None)
  Receive Date: 20070321
  Receipt Date: 20070321
  Transmission Date: 20070707
  Serious: No
  Sender: FDA-Public Use
  Company Number: None

PATIENT
  Sex: Female
  Weight: 30 kg

DRUGS (6)
  1. DAUNORUBICIN HCL [Suspect]
     Dosage: 53 MG
  2. DEXAMETHASONE [Suspect]
     Dosage: 77 MG
  3. METHOTREXATE [Suspect]
     Dosage: 15 MG
  4. PEG-L-ASPARAGINASE (K-H) [Suspect]
     Dosage: 2650 IU
  5. VINCRISTINE SULFATE [Suspect]
     Dosage: 3.2 MG
  6. CYTARABINE [Suspect]
     Dosage: 70  MG

REACTIONS (29)
  - ABDOMINAL PAIN [None]
  - AGITATION [None]
  - ALANINE AMINOTRANSFERASE INCREASED [None]
  - ANAEMIA [None]
  - ASPARTATE AMINOTRANSFERASE INCREASED [None]
  - BLOOD FIBRINOGEN DECREASED [None]
  - BLOOD PHOSPHORUS INCREASED [None]
  - BLOOD POTASSIUM INCREASED [None]
  - BLOOD UREA INCREASED [None]
  - BLOOD URIC ACID INCREASED [None]
  - CLOSTRIDIUM DIFFICILE TOXIN TEST POSITIVE [None]
  - DEHYDRATION [None]
  - GASTROINTESTINAL NECROSIS [None]
  - HAEMODYNAMIC INSTABILITY [None]
  - HEPATIC NECROSIS [None]
  - HYPOCALCAEMIA [None]
  - HYPONATRAEMIA [None]
  - HYPOTENSION [None]
  - HYPOTHERMIA [None]
  - MENTAL STATUS CHANGES [None]
  - METABOLIC DISORDER [None]
  - NEUTROPENIA [None]
  - OCCULT BLOOD POSITIVE [None]
  - PNEUMATOSIS [None]
  - RESPIRATORY FAILURE [None]
  - THROMBOCYTOPENIA [None]
  - TUMOUR LYSIS SYNDROME [None]
  - VOMITING [None]
  - WHITE BLOOD CELL COUNT DECREASED [None]
